FAERS Safety Report 17031970 (Version 2)
Quarter: 2019Q4

REPORT INFORMATION
  Report Type: Spontaneous
  Country: BH (occurrence: BH)
  Receive Date: 20191114
  Receipt Date: 20191126
  Transmission Date: 20200122
  Serious: Yes (Other)
  Sender: FDA-Public Use
  Company Number: BH-BAUSCH-BL-2019-060174

PATIENT
  Sex: Female

DRUGS (5)
  1. PREDNISOLONE. [Suspect]
     Active Substance: PREDNISOLONE
     Dosage: PREDNISOLONE DOSE TAPERED
     Route: 048
  2. METHYLPREDNISOLONE. [Suspect]
     Active Substance: METHYLPREDNISOLONE
     Indication: MAJEED^S SYNDROME
     Dosage: PULSE THERAPY
     Route: 065
  3. NAPROXEN. [Concomitant]
     Active Substance: NAPROXEN
     Indication: CONGENITAL DYSERYTHROPOIETIC ANAEMIA
  4. IRON [Concomitant]
     Active Substance: IRON
     Indication: CONGENITAL DYSERYTHROPOIETIC ANAEMIA
  5. PREDNISOLONE. [Suspect]
     Active Substance: PREDNISOLONE
     Indication: MAJEED^S SYNDROME
     Route: 048

REACTIONS (1)
  - Upper respiratory tract infection [Unknown]
